FAERS Safety Report 7738086-9 (Version None)
Quarter: 2011Q3

REPORT INFORMATION
  Report Type: 
  Country: None (occurrence: None)
  Receive Date: 20110906
  Receipt Date: 20110826
  Transmission Date: 20111222
  Serious: Yes (Other)
  Sender: FDA-Public Use
  Company Number: BR-ACCORD-010291

PATIENT
  Age: 77 Year
  Sex: Female

DRUGS (4)
  1. FLUOROURACIL [Suspect]
     Indication: COLON CANCER STAGE II
     Dates: start: 20080201, end: 20080701
  2. BEVACIZUMAB(BEVACIZUMAB) [Suspect]
     Indication: COLON CANCER STAGE II
     Dates: start: 20080201, end: 20080701
  3. IRINOTECAN HCL [Suspect]
     Indication: COLON CANCER STAGE II
     Dates: start: 20080201, end: 20080701
  4. LEUCOVORIN(LEUCOVORIN) [Concomitant]

REACTIONS (4)
  - DIARRHOEA [None]
  - TOXICITY TO VARIOUS AGENTS [None]
  - MUCOSAL INFLAMMATION [None]
  - PROTEINURIA [None]
